FAERS Safety Report 18904357 (Version 1)
Quarter: 2021Q1

REPORT INFORMATION
  Report Type: Spontaneous
  Country: US (occurrence: US)
  Receive Date: 20210217
  Receipt Date: 20210217
  Transmission Date: 20210420
  Serious: Yes (Other)
  Sender: FDA-Public Use
  Company Number: None

PATIENT
  Age: 75 Year
  Sex: Male
  Weight: 101.6 kg

DRUGS (1)
  1. ENOXAPARIN 100MG PREFILLED SYRINGE [Suspect]
     Active Substance: ENOXAPARIN SODIUM
     Indication: ATRIAL FIBRILLATION
     Route: 058
     Dates: start: 20210210, end: 20210212

REACTIONS (1)
  - Haematoma muscle [None]

NARRATIVE: CASE EVENT DATE: 20210211
